FAERS Safety Report 16349934 (Version 1)
Quarter: 2020Q3

REPORT INFORMATION
  Report Type: Spontaneous
  Country: US (occurrence: US)
  Receive Date: 20190523
  Receipt Date: 20190523
  Transmission Date: 20201104
  Serious: Yes (Other)
  Sender: FDA-Public Use
  Company Number: US-ALLERGAN-1921408US

PATIENT
  Sex: Female

DRUGS (9)
  1. FOSAMAX [Suspect]
     Active Substance: ALENDRONATE SODIUM
     Indication: OSTEOPOROSIS
     Dosage: 10 MG
     Route: 048
     Dates: start: 20001009, end: 20010125
  2. WARFARIN [Concomitant]
     Active Substance: WARFARIN
     Dosage: UNK
     Dates: start: 2009, end: 2010
  3. CALCIUM [Concomitant]
     Active Substance: CALCIUM
  4. FOSAMAX [Suspect]
     Active Substance: ALENDRONATE SODIUM
     Dosage: 70 UNK
     Dates: start: 20010125, end: 20051010
  5. AMBIEN [Concomitant]
     Active Substance: ZOLPIDEM TARTRATE
     Dosage: UNK
     Dates: start: 2005
  6. IBANDRONIC ACID. [Suspect]
     Active Substance: IBANDRONIC ACID
     Indication: OSTEOPOROSIS
     Dosage: 150 MG
     Route: 048
     Dates: start: 20051211, end: 20100911
  7. VITAMIN D [Concomitant]
     Active Substance: VITAMIN D NOS
  8. PAIN MEDICATION [Concomitant]
     Active Substance: UNSPECIFIED INGREDIENT
  9. RISEDRONATE SODIUM ? BP [Suspect]
     Active Substance: RISEDRONATE SODIUM
     Indication: OSTEOPOROSIS
     Dosage: 35 MG
     Route: 048
     Dates: start: 20001010, end: 20051211

REACTIONS (5)
  - Stress fracture [Unknown]
  - Low turnover osteopathy [Unknown]
  - Emotional distress [Unknown]
  - Anxiety [Unknown]
  - Femur fracture [Unknown]

NARRATIVE: CASE EVENT DATE: 20101107
